FAERS Safety Report 5410370-3 (Version None)
Quarter: 2007Q3

REPORT INFORMATION
  Report Type: 
  Country: None (occurrence: None)
  Receive Date: 20070808
  Receipt Date: 20070723
  Transmission Date: 20080115
  Serious: Yes (Hospitalization)
  Sender: FDA-Public Use
  Company Number: VNL_00637_2007

PATIENT
  Sex: Male

DRUGS (9)
  1. APO-GO (APO-GO - SOLUTION FOR INJECTION (AMPOULES) - APOMORPHINE HYDRO [Suspect]
     Indication: PARKINSON'S DISEASE
     Dosage: SUBCUTANEOUS, DF FOR 4 DAYS; SUBCUTANEOUS, UP TO 6-7 TIMES PER DAY; SUBCUTANEOUS, SUBCUTANEOUS
     Route: 058
     Dates: start: 20040101, end: 20070629
  2. APO-GO (APO-GO - SOLUTION FOR INJECTION (AMPOULES) - APOMORPHINE HYDRO [Suspect]
     Indication: PARKINSON'S DISEASE
     Dosage: SUBCUTANEOUS, DF FOR 4 DAYS; SUBCUTANEOUS, UP TO 6-7 TIMES PER DAY; SUBCUTANEOUS, SUBCUTANEOUS
     Route: 058
     Dates: start: 20070629, end: 20070702
  3. APO-GO (APO-GO - SOLUTION FOR INJECTION (AMPOULES) - APOMORPHINE HYDRO [Suspect]
     Indication: PARKINSON'S DISEASE
     Dosage: SUBCUTANEOUS, DF FOR 4 DAYS; SUBCUTANEOUS, UP TO 6-7 TIMES PER DAY; SUBCUTANEOUS, SUBCUTANEOUS
     Route: 058
     Dates: start: 20070629
  4. APO-GO (APO-GO - SOLUTION FOR INJECTION (AMPOULES) - APOMORPHINE HYDRO [Suspect]
     Indication: PARKINSON'S DISEASE
     Dosage: SUBCUTANEOUS, DF FOR 4 DAYS; SUBCUTANEOUS, UP TO 6-7 TIMES PER DAY; SUBCUTANEOUS, SUBCUTANEOUS
     Route: 058
     Dates: start: 20070702
  5. CO-CARELDOPA [Concomitant]
  6. ALMIRID [Concomitant]
  7. TORSEMIDE [Concomitant]
  8. MOTILIUM [Concomitant]
  9. TAVANIC [Concomitant]

REACTIONS (7)
  - AGGRESSION [None]
  - CONFUSIONAL STATE [None]
  - DEPENDENCE [None]
  - DEVICE MALFUNCTION [None]
  - INTENTIONAL DRUG MISUSE [None]
  - RESTLESSNESS [None]
  - TREMOR [None]
